FAERS Safety Report 25743419 (Version 2)
Quarter: 2025Q4

REPORT INFORMATION
  Report Type: Report from Study
  Country: JP (occurrence: JP)
  Receive Date: 20250830
  Receipt Date: 20251020
  Transmission Date: 20260117
  Serious: Yes (Hospitalization, Other)
  Sender: CSL BEHRING
  Company Number: JP-BEH-2023157177

PATIENT
  Age: 28 Year
  Sex: Male
  Weight: 58 kg

DRUGS (4)
  1. PRIVIGEN [Suspect]
     Active Substance: HUMAN IMMUNOGLOBULIN G
     Indication: Hypogammaglobulinaemia
     Dosage: 200 ML, SINGLE
     Route: 042
     Dates: start: 20210412, end: 20210412
  2. PRIVIGEN [Suspect]
     Active Substance: HUMAN IMMUNOGLOBULIN G
     Indication: Primary immunodeficiency syndrome
     Dosage: 200 ML, SINGLE
     Route: 042
     Dates: start: 20210521, end: 20210521
  3. PRIVIGEN [Suspect]
     Active Substance: HUMAN IMMUNOGLOBULIN G
     Indication: Immunodeficiency common variable
     Dosage: 200 ML, QMT
     Route: 042
     Dates: start: 20210719, end: 20210820
  4. PRIVIGEN [Suspect]
     Active Substance: HUMAN IMMUNOGLOBULIN G
     Dosage: 200 ML, QMT
     Route: 042
     Dates: start: 20210924

REACTIONS (2)
  - Bipolar disorder [Recovering/Resolving]
  - Headache [Recovered/Resolved]

NARRATIVE: CASE EVENT DATE: 20210412
